FAERS Safety Report 4946167-8 (Version None)
Quarter: 2006Q1

REPORT INFORMATION
  Report Type: 
  Country: None (occurrence: None)
  Receive Date: 20060118
  Receipt Date: 20050714
  Transmission Date: 20060701
  Serious: Yes (Other)
  Sender: FDA-Public Use
  Company Number: US-JNJFOC-20050600921

PATIENT
  Age: 46 Year
  Sex: Female

DRUGS (1)
  1. DOXIL [Suspect]
     Indication: LEIOMYOSARCOMA METASTATIC
     Dosage: 5 CYCLES
     Dates: start: 20041201, end: 20050501

REACTIONS (2)
  - LEIOMYOSARCOMA [None]
  - MALIGNANT NEOPLASM PROGRESSION [None]
